FAERS Safety Report 12744445 (Version 1)
Quarter: 2016Q3

REPORT INFORMATION
  Report Type: Spontaneous
  Country: US (occurrence: US)
  Receive Date: 20160914
  Receipt Date: 20160914
  Transmission Date: 20161109
  Serious: No
  Sender: FDA-Public Use
  Company Number: US-JAZZ-2016-US-009364

PATIENT
  Sex: Female

DRUGS (30)
  1. NUVIGIL [Suspect]
     Active Substance: ARMODAFINIL
     Indication: PRODUCT USED FOR UNKNOWN INDICATION
     Dosage: UNK
     Dates: start: 20150513, end: 20160430
  2. ANTIVERT [Concomitant]
     Active Substance: MECLIZINE HYDROCHLORIDE
  3. DOMPERIDONE [Concomitant]
     Active Substance: DOMPERIDONE
  4. STOOL SOFTENER [Concomitant]
     Active Substance: DOCUSATE CALCIUM
  5. XYREM [Suspect]
     Active Substance: SODIUM OXYBATE
     Dosage: DOSE ADJUSTMENTS
     Route: 048
  6. ZETIA [Concomitant]
     Active Substance: EZETIMIBE
  7. MAGNESIUM [Concomitant]
     Active Substance: MAGNESIUM
  8. DEXAMETHASONE. [Concomitant]
     Active Substance: DEXAMETHASONE
  9. TOPROL XL [Concomitant]
     Active Substance: METOPROLOL SUCCINATE
  10. ULTRAM [Concomitant]
     Active Substance: TRAMADOL HYDROCHLORIDE
  11. XANAX [Concomitant]
     Active Substance: ALPRAZOLAM
  12. XYREM [Suspect]
     Active Substance: SODIUM OXYBATE
     Dosage: 3.75 G, FIRST DOSE
     Route: 048
     Dates: start: 201603
  13. XYREM [Suspect]
     Active Substance: SODIUM OXYBATE
     Dosage: 3 G, SECOND DOSE
     Route: 048
     Dates: start: 201603
  14. PROCHLORPERAZINE EDISYLATE. [Concomitant]
     Active Substance: PROCHLORPERAZINE EDISYLATE
  15. METHOTREXATE. [Concomitant]
     Active Substance: METHOTREXATE
  16. XYREM [Suspect]
     Active Substance: SODIUM OXYBATE
     Indication: NARCOLEPSY
     Dosage: 2.25 G, BID
     Route: 048
     Dates: start: 201506, end: 201506
  17. MACRODANTIN [Concomitant]
     Active Substance: NITROFURANTOIN
  18. PYRIDIUM [Concomitant]
     Active Substance: PHENAZOPYRIDINE
  19. ASPIRIN. [Concomitant]
     Active Substance: ASPIRIN
  20. DRISDOL [Concomitant]
     Active Substance: ERGOCALCIFEROL
  21. LAMICTAL [Suspect]
     Active Substance: LAMOTRIGINE
     Indication: PRODUCT USED FOR UNKNOWN INDICATION
     Dosage: UNK
     Dates: start: 20150513
  22. LIDODERM [Concomitant]
     Active Substance: LIDOCAINE
  23. REQUIP [Concomitant]
     Active Substance: ROPINIROLE HYDROCHLORIDE
  24. TAMOXIFEN [Concomitant]
     Active Substance: TAMOXIFEN
  25. ZETIA [Concomitant]
     Active Substance: EZETIMIBE
  26. CLARITIN [Concomitant]
     Active Substance: LORATADINE
  27. CALCIUM +D [Concomitant]
     Active Substance: CALCIUM\VITAMIN D
  28. ALLEGRA ALLERGY [Concomitant]
     Active Substance: FEXOFENADINE HYDROCHLORIDE
  29. FOLVITE [Concomitant]
     Active Substance: FOLIC ACID
  30. ZEGERID [Concomitant]
     Active Substance: OMEPRAZOLE\SODIUM BICARBONATE

REACTIONS (1)
  - Vision blurred [Recovering/Resolving]
